FAERS Safety Report 8981372 (Version 4)
Quarter: 2013Q1

REPORT INFORMATION
  Report Type: Spontaneous
  Country: US (occurrence: US)
  Receive Date: 20121221
  Receipt Date: 20130226
  Transmission Date: 20140127
  Serious: No
  Sender: FDA-Public Use
  Company Number: US-PFIZER INC-2012323480

PATIENT
  Age: 80 Year
  Sex: Male
  Weight: 81.63 kg

DRUGS (5)
  1. SUTENT [Suspect]
     Indication: GASTROINTESTINAL STROMAL TUMOUR
     Dosage: 50 MG, 1X/DAY (14 DAYS ON, 7 DAYS OFF)
     Route: 048
     Dates: start: 20121204
  2. PROZAC [Concomitant]
     Indication: ANXIETY
     Dosage: 40 MG, 1X/DAY
     Dates: start: 2009
  3. PROZAC [Concomitant]
     Indication: DEPRESSION
  4. ZYRTEC [Concomitant]
     Indication: SEASONAL ALLERGY
     Dosage: UNK, DAILY
  5. IRON [Concomitant]
     Indication: ANAEMIA
     Dosage: UNK, 2X/DAY
     Dates: start: 2011

REACTIONS (8)
  - Rash [Not Recovered/Not Resolved]
  - Tongue eruption [Not Recovered/Not Resolved]
  - Cheilitis [Not Recovered/Not Resolved]
  - Lip pain [Not Recovered/Not Resolved]
  - Stomatitis [Recovered/Resolved]
  - Yellow skin [Unknown]
  - Headache [Unknown]
  - Stomatitis [Unknown]
